FAERS Safety Report 21021875 (Version 1)
Quarter: 2022Q2

REPORT INFORMATION
  Report Type: Spontaneous
  Country: US (occurrence: US)
  Receive Date: 20220629
  Receipt Date: 20220629
  Transmission Date: 20220720
  Serious: No
  Sender: FDA-Public Use
  Company Number: US-ALM-HQ-US-2022-0534

PATIENT
  Sex: Male

DRUGS (1)
  1. KLISYRI [Suspect]
     Active Substance: TIRBANIBULIN
     Route: 061
     Dates: start: 202203

REACTIONS (3)
  - Application site erythema [Unknown]
  - Application site dryness [Unknown]
  - Application site scab [Unknown]
